FAERS Safety Report 9819996 (Version 1)
Quarter: 2013Q3

REPORT INFORMATION
  Report Type: Spontaneous
  Country: US (occurrence: None)
  Receive Date: 20130924
  Receipt Date: 20130924
  Transmission Date: 20140515
  Serious: Yes (Other)
  Sender: FDA-Public Use
  Company Number: 2013000222

PATIENT
  Age: 61 Year
  Sex: Female
  Weight: 70.5 kg

DRUGS (3)
  1. OSPHENA [Suspect]
     Indication: DYSPAREUNIA
     Route: 048
     Dates: start: 20130708, end: 20130712
  2. MULTIVITAMINS (ASCORBIC ACID, ERGOCALCIFEROL, FOLIC ACID, NICOTIN-A-MIDE, PANTHENOL, RETINOL, RIBOFLAVIN, THIAMINE [Concomitant]
  3. EVOTHYROXINE SODIUM) [Concomitant]

REACTIONS (1)
  - Chest pain [None]
